FAERS Safety Report 23129247 (Version 1)
Quarter: 2023Q4

REPORT INFORMATION
  Report Type: Spontaneous
  Country: US (occurrence: US)
  Receive Date: 20231031
  Receipt Date: 20231031
  Transmission Date: 20240109
  Serious: Yes (Other)
  Sender: FDA-Public Use
  Company Number: US-TEVA-2023-US-2941515

PATIENT
  Age: 25 Year
  Sex: Female

DRUGS (1)
  1. CAMRESE [Suspect]
     Active Substance: ETHINYL ESTRADIOL\LEVONORGESTREL
     Indication: Contraception
     Dosage: 0.15 MG / 0.03 MG / 0.01 MG
     Route: 065

REACTIONS (3)
  - Haemorrhage [Unknown]
  - Affective disorder [Unknown]
  - Acne [Unknown]

NARRATIVE: CASE EVENT DATE: 20230101
